FAERS Safety Report 13778565 (Version 2)
Quarter: 2017Q3

REPORT INFORMATION
  Report Type: Spontaneous
  Country: RU (occurrence: RU)
  Receive Date: 20170721
  Receipt Date: 20170728
  Transmission Date: 20171127
  Serious: Yes (Death)
  Sender: FDA-Public Use
  Company Number: RU-ABBVIE-17P-251-2045905-00

PATIENT
  Age: 45 Year
  Sex: Female

DRUGS (1)
  1. VIEKIRA PAK [Suspect]
     Active Substance: DASABUVIR\OMBITASVIR\PARITAPREVIR\RITONAVIR
     Indication: HEPATITIS C
     Route: 048
     Dates: start: 20170504, end: 20170622

REACTIONS (7)
  - Haemoglobin decreased [Unknown]
  - Red blood cell count decreased [Unknown]
  - Pseudomembranous colitis [Fatal]
  - Gastrointestinal injury [Fatal]
  - Platelet count decreased [Unknown]
  - Gastrointestinal haemorrhage [Fatal]
  - Colitis ulcerative [Fatal]

NARRATIVE: CASE EVENT DATE: 20170607
